FAERS Safety Report 17677824 (Version 4)
Quarter: 2021Q4

REPORT INFORMATION
  Report Type: Spontaneous
  Country: US (occurrence: US)
  Receive Date: 20200416
  Receipt Date: 20211005
  Transmission Date: 20220303
  Serious: Yes (Other)
  Sender: FDA-Public Use
  Company Number: 2020SE50677

PATIENT
  Age: 27355 Day
  Sex: Male

DRUGS (48)
  1. NEXIUM [Suspect]
     Active Substance: ESOMEPRAZOLE MAGNESIUM
     Indication: Gastrooesophageal reflux disease
     Route: 048
     Dates: start: 200501, end: 201712
  2. NEXIUM [Suspect]
     Active Substance: ESOMEPRAZOLE MAGNESIUM
     Indication: Gastrooesophageal reflux disease
     Route: 048
     Dates: start: 2005, end: 2016
  3. NEXIUM [Suspect]
     Active Substance: ESOMEPRAZOLE MAGNESIUM
     Indication: Gastrooesophageal reflux disease
     Dosage: GENERIC
     Route: 065
     Dates: start: 2020
  4. NEXIUM 24HR [Suspect]
     Active Substance: ESOMEPRAZOLE MAGNESIUM
     Indication: Gastrooesophageal reflux disease
     Route: 048
     Dates: start: 200501, end: 201712
  5. NEXIUM 24HR [Suspect]
     Active Substance: ESOMEPRAZOLE MAGNESIUM
     Indication: Gastrooesophageal reflux disease
     Route: 048
     Dates: start: 2014, end: 2017
  6. LANTUS [Concomitant]
     Active Substance: INSULIN GLARGINE
  7. METFORMIN [Concomitant]
     Active Substance: METFORMIN HYDROCHLORIDE
  8. SPIRIVA [Concomitant]
     Active Substance: TIOTROPIUM BROMIDE MONOHYDRATE
  9. MICARDIS [Concomitant]
     Active Substance: TELMISARTAN
  10. PRAVASTATIN [Concomitant]
     Active Substance: PRAVASTATIN
  11. AMLODIPINE [Concomitant]
     Active Substance: AMLODIPINE BESYLATE
  12. ALLOPURINOL [Concomitant]
     Active Substance: ALLOPURINOL
  13. CLONIDINE [Concomitant]
     Active Substance: CLONIDINE
  14. GLIPIZIDE [Concomitant]
     Active Substance: GLIPIZIDE
  15. K-DUR [Concomitant]
     Active Substance: POTASSIUM CHLORIDE
  16. FUROSEMIDE [Concomitant]
     Active Substance: FUROSEMIDE
  17. LISINOPRIL [Concomitant]
     Active Substance: LISINOPRIL
     Indication: Blood pressure measurement
  18. LISINOPRIL [Concomitant]
     Active Substance: LISINOPRIL
     Indication: Cardiac failure
  19. LIPITOR [Concomitant]
     Active Substance: ATORVASTATIN CALCIUM
     Indication: Blood cholesterol abnormal
  20. AZITHROMYCIN ANHYDROUS [Concomitant]
     Active Substance: AZITHROMYCIN ANHYDROUS
     Indication: Infection
  21. GLYCYRRHIZIC ACID/SULFAMETHOXAZOLE/AMINOCAPROIC ACID/CHLORPHENAMINE [Concomitant]
     Indication: Infection
  22. CIPROFLOXACIN [Concomitant]
     Active Substance: CIPROFLOXACIN
     Indication: Infection
  23. PENICILLIN [Concomitant]
     Active Substance: PENICILLIN
     Indication: Infection
  24. TOBRAMYCIN [Concomitant]
     Active Substance: TOBRAMYCIN
     Indication: Infection
  25. TRAMADOL [Concomitant]
     Active Substance: TRAMADOL
     Indication: Pain
  26. DOXYCYCLINE [Concomitant]
     Active Substance: DOXYCYCLINE
     Indication: Infection
  27. AMOXICILLIN [Concomitant]
     Active Substance: AMOXICILLIN
     Indication: Infection
  28. INDOMETHACIN [Concomitant]
     Active Substance: INDOMETHACIN
     Indication: Pain
  29. VIGAMOX [Concomitant]
     Active Substance: MOXIFLOXACIN HYDROCHLORIDE
     Indication: Pain
  30. AMINOACRIDINE/HYDROCORTISONE/NEOMYCIN/POLYMYXIN B/BENZOCAINE [Concomitant]
     Indication: Infection
  31. NEOMYCIN/ACETIC ACID/DEXAMETHASONE [Concomitant]
     Indication: Infection
  32. LOSARATN [Concomitant]
     Indication: Non-dipping
  33. ASPIRIN [Concomitant]
     Active Substance: ASPIRIN
     Indication: Headache
  34. QUERCETIN/CITRULLINE/CALCIUM PHOSPHATE DIBASIC/RETINOL PALMITATE/RUTOS [Concomitant]
  35. MIRALAX [Concomitant]
     Active Substance: POLYETHYLENE GLYCOL 3350
  36. ACTOS [Concomitant]
     Active Substance: PIOGLITAZONE HYDROCHLORIDE
  37. SIMVATSTAIN [Concomitant]
  38. RAMIPRIL [Concomitant]
     Active Substance: RAMIPRIL
  39. ZYRTEC [Concomitant]
     Active Substance: CETIRIZINE HYDROCHLORIDE
  40. CYCLOBENZAPRINE [Concomitant]
     Active Substance: CYCLOBENZAPRINE
  41. NYSTATIN [Concomitant]
     Active Substance: NYSTATIN
  42. ALUMINIUM HYDROXIDE/PHENYLBUTAZONE/METHOCARBAMOL/DEXAMETHASONE [Concomitant]
  43. ETODOLAC [Concomitant]
     Active Substance: ETODOLAC
  44. PROMETHAZINE [Concomitant]
     Active Substance: PROMETHAZINE HYDROCHLORIDE
  45. DERMOTIC [Concomitant]
     Active Substance: FLUOCINOLONE ACETONIDE
  46. ALLANTOIN/COAL TAR/TRIAMCINOLONE [Concomitant]
  47. ASTEUN [Concomitant]
  48. FOLIC ACID [Concomitant]
     Active Substance: FOLIC ACID

REACTIONS (4)
  - Chronic kidney disease [Not Recovered/Not Resolved]
  - Acute kidney injury [Not Recovered/Not Resolved]
  - Nephrogenic anaemia [Unknown]
  - Renal failure [Unknown]

NARRATIVE: CASE EVENT DATE: 20150522
